FAERS Safety Report 8163895-4 (Version None)
Quarter: 2012Q1

REPORT INFORMATION
  Report Type: 
  Country: None (occurrence: None)
  Receive Date: 20120224
  Receipt Date: 20120214
  Transmission Date: 20120608
  Serious: Yes (Hospitalization)
  Sender: FDA-Public Use
  Company Number: BR-ELI_LILLY_AND_COMPANY-BR201202004143

PATIENT
  Sex: Female
  Weight: 49.5 kg

DRUGS (12)
  1. FORTEO [Suspect]
     Indication: OSTEOPOROSIS
     Dosage: UNK, QD
     Route: 058
  2. CARVEDILOL [Concomitant]
     Route: 065
  3. WARFARIN SODIUM [Concomitant]
     Dosage: UNK, UNKNOWN
     Route: 065
  4. DIGOXIN [Concomitant]
     Dosage: UNK, UNKNOWN
     Route: 065
  5. ZOLPIDEM [Concomitant]
     Dosage: UNK, UNKNOWN
     Route: 065
  6. LEVOTHYROXINE SODIUM [Concomitant]
     Dosage: UNK, UNKNOWN
     Route: 065
  7. ALDACTONE [Concomitant]
     Dosage: UNK, UNKNOWN
     Route: 065
  8. OMEPRAZOLE [Concomitant]
     Dosage: UNK, UNKNOWN
     Route: 065
  9. METFORMIN HCL [Concomitant]
     Dosage: UNK
     Route: 065
  10. DAFLON [Concomitant]
     Dosage: UNK, UNKNOWN
     Route: 065
  11. SINVASTATINA [Concomitant]
     Dosage: UNK, UNKNOWN
     Route: 065
  12. COLECALCIFEROL [Concomitant]
     Dosage: UNK, UNKNOWN
     Route: 065

REACTIONS (3)
  - GASTROINTESTINAL INFECTION [None]
  - ANURIA [None]
  - INTRACARDIAC THROMBUS [None]
